FAERS Safety Report 23862174 (Version 1)
Quarter: 2024Q2

REPORT INFORMATION
  Report Type: Spontaneous
  Country: US (occurrence: US)
  Receive Date: 20240516
  Receipt Date: 20240516
  Transmission Date: 20240716
  Serious: Yes (Other)
  Sender: FDA-Public Use
  Company Number: US-STRIDES ARCOLAB LIMITED-2024SP005701

PATIENT
  Sex: Female

DRUGS (4)
  1. PREDNISOLONE [Suspect]
     Active Substance: PREDNISOLONE
     Indication: Dermatitis contact
     Dosage: UNK (TAPER PACK)
     Route: 065
     Dates: start: 2022
  2. MOMETASONE [Suspect]
     Active Substance: MOMETASONE
     Indication: Dermatitis contact
     Dosage: UNK
     Route: 061
  3. ECONAZOLE [Concomitant]
     Active Substance: ECONAZOLE
     Indication: Trichophytosis
     Dosage: UNK
     Route: 061
  4. DIPHENHYDRAMINE [Concomitant]
     Active Substance: DIPHENHYDRAMINE
     Indication: Trichophytosis
     Dosage: UNK
     Route: 065

REACTIONS (1)
  - Condition aggravated [Recovered/Resolved]
